FAERS Safety Report 5942600-3 (Version None)
Quarter: 2008Q4

REPORT INFORMATION
  Report Type: 
  Country: None (occurrence: None)
  Receive Date: 20081103
  Receipt Date: 20081022
  Transmission Date: 20090506
  Serious: Yes (Hospitalization, Other)
  Sender: FDA-Public Use
  Company Number: A-JP2008-19692

PATIENT
  Age: 43 Year
  Sex: Female
  Weight: 35 kg

DRUGS (8)
  1. TRACLEER [Suspect]
     Indication: PULMONARY HYPERTENSION
     Dosage: 62.5 MG, BID, ORAL
     Route: 048
     Dates: start: 20070223, end: 20070322
  2. EPOPROSTENOL SODIUM [Concomitant]
  3. WARFARIN POTASSIUM (WARFARIN POTASSIUM) [Concomitant]
  4. LOXOPROFEN SODIUM (LOXOPROFEN SODIUM) [Concomitant]
  5. PREDNISONE [Concomitant]
  6. ALFACALCIDOL (ALFACALCIDOL) [Concomitant]
  7. ETANERCEPT (ETANERCEPT) [Concomitant]
  8. LANSOPRAZOLE [Concomitant]

REACTIONS (4)
  - ANAEMIA [None]
  - CONDITION AGGRAVATED [None]
  - NEUTROPHIL COUNT DECREASED [None]
  - WHITE BLOOD CELL COUNT DECREASED [None]
